FAERS Safety Report 4441100-X (Version None)
Quarter: 2004Q3

REPORT INFORMATION
  Report Type: 
  Country: None (occurrence: None)
  Receive Date: 20040830
  Receipt Date: 20040115
  Transmission Date: 20050211
  Serious: Yes (Life-Threatening)
  Sender: FDA-Public Use
  Company Number: 233323

PATIENT
  Age: 47 Year
  Sex: Female
  Weight: 59 kg

DRUGS (2)
  1. NOVOLIN 70/30 [Suspect]
     Indication: DIABETES MELLITUS INSULIN-DEPENDENT
     Dosage: 66 IU, QD, SUBCUTANEOUS
     Route: 058
     Dates: start: 20000101
  2. NOVOFINE 30 (NEEDLE) [Concomitant]

REACTIONS (1)
  - HYPOGLYCAEMIC COMA [None]
